FAERS Safety Report 26057996 (Version 1)
Quarter: 2025Q4

REPORT INFORMATION
  Report Type: Spontaneous
  Country: US (occurrence: US)
  Receive Date: 20251118
  Receipt Date: 20251118
  Transmission Date: 20260117
  Serious: No
  Sender: ELI LILLY AND COMPANY
  Company Number: US-ELI_LILLY_AND_COMPANY-US202510036779

PATIENT
  Sex: Female

DRUGS (2)
  1. DONANEMAB [Suspect]
     Active Substance: DONANEMAB
     Indication: Product used for unknown indication
     Dosage: UNK UNK, UNKNOWN, 1ST INFUSION
     Route: 065
  2. DONANEMAB [Suspect]
     Active Substance: DONANEMAB
     Dosage: UNK UNK, UNKNOWN, 2ND INFUSION
     Route: 065
     Dates: start: 20251028

REACTIONS (2)
  - Flushing [Unknown]
  - Chills [Unknown]

NARRATIVE: CASE EVENT DATE: 20251028
